FAERS Safety Report 4347961-7 (Version None)
Quarter: 2004Q2

REPORT INFORMATION
  Report Type: 
  Country: None (occurrence: None)
  Receive Date: 20040422
  Receipt Date: 20040409
  Transmission Date: 20050107
  Serious: Yes (Hospitalization)
  Sender: FDA-Public Use
  Company Number: PHHO2004US03589

PATIENT
  Age: 51 Year
  Sex: Female
  Weight: 106 kg

DRUGS (13)
  1. CERL080A(ERL 080A ERL+TAB) TABLET [Concomitant]
     Indication: RENAL TRANSPLANT
     Dosage: 720 MG, BID, ORAL
     Route: 048
     Dates: start: 20030801
  2. NEORAL [Suspect]
     Indication: RENAL TRANSPLANT
     Dosage: 75 MG, BID, ORAL
     Route: 048
  3. PRAVACHOL [Concomitant]
  4. NORVASC [Concomitant]
  5. ALTACE [Concomitant]
  6. ZETIA [Concomitant]
  7. NPH INSULIN [Concomitant]
  8. CLONIDINE [Concomitant]
  9. TOPROL-XL [Concomitant]
  10. CATAPRES [Concomitant]
  11. LASIX [Concomitant]
  12. MAGNESIUM OXIDE [Concomitant]
  13. HEPARIN [Concomitant]

REACTIONS (10)
  - ATRIAL FIBRILLATION [None]
  - CHILLS [None]
  - COUGH [None]
  - DRUG INEFFECTIVE [None]
  - HEADACHE [None]
  - HYDRONEPHROSIS [None]
  - PYELONEPHRITIS [None]
  - THYROIDITIS [None]
  - URETERIC STENOSIS [None]
  - URINARY TRACT INFECTION [None]
